FAERS Safety Report 23113983 (Version 4)
Quarter: 2023Q4

REPORT INFORMATION
  Report Type: Spontaneous
  Country: US (occurrence: None)
  Receive Date: 20231027
  Receipt Date: 20231212
  Transmission Date: 20240110
  Serious: No
  Sender: FDA-Public Use
  Company Number: 2023A242230

PATIENT

DRUGS (2)
  1. BREZTRI [Suspect]
     Active Substance: BUDESONIDE\FORMOTEROL\GLYCOPYRROLATE
     Dosage: 120 INHALATION INHALER UNKNOWN
     Route: 055
  2. BREZTRI [Suspect]
     Active Substance: BUDESONIDE\FORMOTEROL\GLYCOPYRROLATE
     Dosage: 120 INHALATION INHALER UNKNOWN
     Route: 055

REACTIONS (9)
  - Glossitis [Unknown]
  - Weight increased [Unknown]
  - Generalised oedema [Unknown]
  - Dyspnoea [Unknown]
  - Heart rate increased [Unknown]
  - Throat irritation [Unknown]
  - Device use issue [Unknown]
  - Drug dose omission by device [Unknown]
  - Device defective [Unknown]
